FAERS Safety Report 4522676-0 (Version None)
Quarter: 2004Q4

REPORT INFORMATION
  Report Type: 
  Country: None (occurrence: None)
  Receive Date: 20041209
  Receipt Date: 20041129
  Transmission Date: 20050328
  Serious: Yes (Hospitalization, Other)
  Sender: FDA-Public Use
  Company Number: CH-ABBOTT-04P-151-0281647-00

PATIENT
  Age: 26 Year
  Sex: Male

DRUGS (3)
  1. AKINETON [Suspect]
     Indication: EXTRAPYRAMIDAL DISORDER
     Route: 048
     Dates: start: 20041001
  2. LEVOMEPROMAZINE [Concomitant]
     Indication: SCHIZOPHRENIA, PARANOID TYPE
     Dates: start: 20040601
  3. OLANZAPINE [Concomitant]
     Indication: SCHIZOPHRENIA, PARANOID TYPE
     Dates: start: 20040601

REACTIONS (3)
  - CARDIAC ARREST [None]
  - GASTROINTESTINAL NECROSIS [None]
  - MEGACOLON ACQUIRED [None]
